FAERS Safety Report 8173039-0 (Version None)
Quarter: 2012Q1

REPORT INFORMATION
  Report Type: 
  Country: None (occurrence: None)
  Receive Date: 20120223
  Receipt Date: 20120206
  Transmission Date: 20120608
  Serious: Yes (Death, Hospitalization, Other)
  Sender: FDA-Public Use
  Company Number: JPI-P-019174

PATIENT
  Age: 79 Year
  Sex: Female
  Weight: 66.2252 kg

DRUGS (3)
  1. XYREM [Suspect]
     Indication: CATAPLEXY
     Dosage: 9 GM (4.5 GM,2 IN 1 D),ORAL
     Route: 048
     Dates: start: 20021008, end: 20120101
  2. SURGERY ANESTHESIA [Suspect]
     Indication: LUNG NEOPLASM SURGERY
     Dosage: INTRAVENOUS
     Route: 042
     Dates: start: 20120103
  3. PHENYTOIN [Concomitant]

REACTIONS (5)
  - BRAIN NEOPLASM [None]
  - DELAYED RECOVERY FROM ANAESTHESIA [None]
  - LUNG NEOPLASM [None]
  - CONVULSION [None]
  - STAPHYLOCOCCAL INFECTION [None]
